FAERS Safety Report 23932648 (Version 1)
Quarter: 2024Q2

REPORT INFORMATION
  Report Type: Spontaneous
  Country: US (occurrence: None)
  Receive Date: 20240601
  Receipt Date: 20240601
  Transmission Date: 20240716
  Serious: No
  Sender: FDA-Public Use
  Company Number: None

PATIENT
  Age: 29 Year
  Sex: Female
  Weight: 101.7 kg

DRUGS (4)
  1. WEGOVY [Suspect]
     Active Substance: SEMAGLUTIDE
     Indication: Weight decreased
  2. ZOLOFT [Concomitant]
     Active Substance: SERTRALINE HYDROCHLORIDE
  3. Blood builder [Concomitant]
  4. MAGNESIUM [Concomitant]

REACTIONS (6)
  - Pain in extremity [None]
  - Arthralgia [None]
  - Back pain [None]
  - Pain in extremity [None]
  - Bone pain [None]
  - Therapy non-responder [None]

NARRATIVE: CASE EVENT DATE: 20240601
